FAERS Safety Report 7630271-X (Version None)
Quarter: 2011Q3

REPORT INFORMATION
  Report Type: 
  Country: None (occurrence: None)
  Receive Date: 20110722
  Receipt Date: 20110708
  Transmission Date: 20111222
  Serious: Yes (Other)
  Sender: FDA-Public Use
  Company Number: PHHY2011US60935

PATIENT
  Sex: Female

DRUGS (15)
  1. XOPENEX [Concomitant]
  2. PROMETHAZINE [Concomitant]
  3. DIGOXIN [Concomitant]
  4. AMLODIPINE [Concomitant]
  5. TEKTURNA [Suspect]
     Indication: HYPERTENSION
     Dosage: 150 MG, DAILY
  6. FUROSEMIDE [Concomitant]
  7. NEXIUM [Concomitant]
  8. CARVEDILOL [Concomitant]
  9. TIMOLOL MALEATE [Concomitant]
  10. ADVAIR DISKUS 100/50 [Concomitant]
  11. TYLENOL-500 [Concomitant]
  12. TEKTURNA [Suspect]
     Indication: CARDIAC FAILURE CONGESTIVE
  13. LIPITOR [Concomitant]
  14. ALENDRONATE SODIUM [Concomitant]
  15. CALCIUM WITH VITAMIN D [Concomitant]

REACTIONS (2)
  - CARDIOMYOPATHY [None]
  - BUNDLE BRANCH BLOCK [None]
